FAERS Safety Report 10045773 (Version 2)
Quarter: 2014Q2

REPORT INFORMATION
  Report Type: Report from Study
  Country: AU (occurrence: AU)
  Receive Date: 20140328
  Receipt Date: 20140401
  Transmission Date: 20141212
  Serious: Yes (Hospitalization)
  Sender: FDA-Public Use
  Company Number: AU-009507513-1403AUS012644

PATIENT
  Age: 77 Year
  Sex: Male
  Weight: 107 kg

DRUGS (13)
  1. BLINDED SITAGLIPTIN PHOSPHATE [Suspect]
     Indication: TYPE 2 DIABETES MELLITUS
     Dosage: UNK
     Route: 048
     Dates: start: 20100825, end: 20131203
  2. EZETIMIBE (+) SIMVASTATIN [Concomitant]
     Indication: HYPERCHOLESTEROLAEMIA
     Dosage: DAILY DOSE 1 TABLET
     Dates: start: 20130809
  3. CHONDROITIN SULFATE SODIUM (+) GLUCOSAMINE SULFATE [Concomitant]
     Indication: BACK PAIN
     Dosage: DAILY DOSE 1 TABLET
     Dates: start: 20080101
  4. ALLOPURINOL [Concomitant]
     Indication: GOUT
     Dosage: DAILY DOSE 100 MG
     Dates: start: 20080101
  5. ASPIRIN [Concomitant]
     Indication: ANTICOAGULANT THERAPY
     Dosage: DAILY DOSE 100 MG
     Dates: start: 20080101
  6. ACETAMINOPHEN [Concomitant]
     Indication: PROPHYLAXIS
     Dosage: DAILY DOSE 500 MG
     Dates: start: 20080101
  7. DUTASTERIDE (+) TAMSULOSIN HYDROCHLORIDE [Concomitant]
     Indication: BLADDER DISORDER
     Dosage: DAILY DOSE 1 TABLET
     Dates: start: 20110615
  8. MAGNESIUM (UNSPECIFIED) [Concomitant]
     Indication: BLOOD MAGNESIUM DECREASED
     Dosage: DAILY DOSE 1000 MG
     Dates: start: 201312
  9. METFORMIN [Concomitant]
     Indication: TYPE 2 DIABETES MELLITUS
     Dosage: DAILY DOSE 1700MG
     Dates: start: 2008
  10. FOSINOPRIL SODIUM [Concomitant]
     Indication: HYPERTENSION
     Dosage: DAILY DOSE 20MG
     Dates: start: 2008
  11. ESOMEPRAZOLE [Concomitant]
     Indication: REFLUX GASTRITIS
     Dosage: DAILY DOSE 40 MG
     Dates: start: 2011
  12. CANDESARTAN [Concomitant]
     Indication: HYPERTENSION
     Dosage: DAILY DOSE 8 MG
     Dates: start: 20120810, end: 20131218
  13. PIOGLITAZONE HYDROCHLORIDE [Concomitant]
     Indication: TYPE 2 DIABETES MELLITUS
     Dosage: DAILY DOSE 30 MG
     Dates: start: 20110823

REACTIONS (1)
  - Osteoarthritis [Recovered/Resolved]
